FAERS Safety Report 5852050-6 (Version None)
Quarter: 2008Q3

REPORT INFORMATION
  Report Type: 
  Country: None (occurrence: None)
  Receive Date: 20080820
  Receipt Date: 20080820
  Transmission Date: 20090109
  Serious: Yes (Hospitalization)
  Sender: FDA-Public Use
  Company Number: None

PATIENT
  Sex: Female
  Weight: 66 kg

DRUGS (4)
  1. SOLIRIS [Suspect]
     Indication: PROPHYLAXIS AGAINST TRANSPLANT REJECTION
     Dosage: 1200 MG THREE IV 600 MG FOUR IV
     Route: 042
     Dates: start: 20080620, end: 20080710
  2. SOLIRIS [Suspect]
     Indication: PROPHYLAXIS AGAINST TRANSPLANT REJECTION
     Dosage: 1200 MG THREE IV 600 MG FOUR IV
     Route: 042
     Dates: start: 20080620, end: 20080710
  3. SOLIRIS [Suspect]
     Indication: PROPHYLAXIS AGAINST TRANSPLANT REJECTION
     Dosage: 1200 MG THREE IV 600 MG FOUR IV
     Route: 042
     Dates: start: 20080718, end: 20080801
  4. SOLIRIS [Suspect]
     Indication: PROPHYLAXIS AGAINST TRANSPLANT REJECTION
     Dosage: 1200 MG THREE IV 600 MG FOUR IV
     Route: 042
     Dates: start: 20080613

REACTIONS (5)
  - BLOOD CREATININE INCREASED [None]
  - COMPLICATIONS OF TRANSPLANTED KIDNEY [None]
  - HYDRONEPHROSIS [None]
  - PERINEPHRIC COLLECTION [None]
  - URETERIC STENOSIS [None]
